FAERS Safety Report 10711796 (Version 4)
Quarter: 2017Q2

REPORT INFORMATION
  Report Type: Spontaneous
  Country: US (occurrence: US)
  Receive Date: 20150114
  Receipt Date: 20170407
  Transmission Date: 20170829
  Serious: Yes (Other)
  Sender: FDA-Public Use
  Company Number: US-009507513-1110USA03594

PATIENT
  Sex: Male
  Weight: 78.19 kg

DRUGS (2)
  1. PROPECIA [Suspect]
     Active Substance: FINASTERIDE
     Indication: ANDROGENETIC ALOPECIA
     Dosage: 1 MG, QD
     Route: 048
     Dates: start: 20090611, end: 200907
  2. PROPECIA [Suspect]
     Active Substance: FINASTERIDE
     Dosage: 1 MG, QD
     Route: 048
     Dates: start: 201001, end: 201002

REACTIONS (46)
  - Prostatic disorder [Unknown]
  - Prostatitis [Unknown]
  - Semen discolouration [Unknown]
  - Hyperaldosteronism [Unknown]
  - Tongue discolouration [Unknown]
  - Sexual dysfunction [Unknown]
  - Ejaculation failure [Unknown]
  - Laceration [Unknown]
  - Temperature intolerance [Unknown]
  - Hyperhidrosis [Unknown]
  - Spinal flattening [Unknown]
  - Semen volume decreased [Unknown]
  - Suicidal ideation [Unknown]
  - Gastroenteritis viral [Unknown]
  - Dry skin [Unknown]
  - Panic attack [Unknown]
  - Gynaecomastia [Unknown]
  - Testicular pain [Recovered/Resolved]
  - Cognitive disorder [Not Recovered/Not Resolved]
  - Gastroenteritis viral [Unknown]
  - Abdominal distension [Unknown]
  - Depression [Not Recovered/Not Resolved]
  - Anxiety [Unknown]
  - Genital hypoaesthesia [Unknown]
  - Dysuria [Recovered/Resolved]
  - Neuropathy peripheral [Unknown]
  - Testicular disorder [Unknown]
  - Eczema [Unknown]
  - Erectile dysfunction [Not Recovered/Not Resolved]
  - Sexual dysfunction [Not Recovered/Not Resolved]
  - Ejaculation disorder [Unknown]
  - Urinary tract infection [Recovered/Resolved]
  - Gastroenteritis viral [Unknown]
  - Stress [Unknown]
  - Hair growth abnormal [Unknown]
  - Feeling hot [Unknown]
  - Libido decreased [Not Recovered/Not Resolved]
  - Semen liquefaction [Not Recovered/Not Resolved]
  - Dry eye [Unknown]
  - Hypotrichosis [Not Recovered/Not Resolved]
  - Dandruff [Unknown]
  - Photophobia [Unknown]
  - Orchitis [Recovered/Resolved]
  - Urethral discharge [Not Recovered/Not Resolved]
  - Weight increased [Not Recovered/Not Resolved]
  - Seborrhoea [Unknown]

NARRATIVE: CASE EVENT DATE: 2009
